FAERS Safety Report 7550502-4 (Version None)
Quarter: 2011Q2

REPORT INFORMATION
  Report Type: 
  Country: None (occurrence: None)
  Receive Date: 20110615
  Receipt Date: 20110606
  Transmission Date: 20111010
  Serious: Yes (Life-Threatening, Hospitalization)
  Sender: FDA-Public Use
  Company Number: CA-ELI_LILLY_AND_COMPANY-CA201106001294

PATIENT
  Sex: Male

DRUGS (11)
  1. CITALOPRAM HYDROBROMIDE [Concomitant]
  2. ZYPREXA [Suspect]
     Dosage: 2.5 MG, UNK
  3. NEXIUM [Concomitant]
  4. PANTOPRAZOLE [Concomitant]
  5. TRAZODONE HCL [Concomitant]
  6. ZYPREXA [Suspect]
     Dosage: 5 MG, QD
  7. ZYPREXA [Suspect]
     Dosage: 20 MG, QD
  8. ZYPREXA [Suspect]
     Dosage: 15 MG, QD
  9. SEROQUEL [Concomitant]
  10. CIALIS [Concomitant]
  11. XENICAL [Concomitant]

REACTIONS (9)
  - DYSLIPIDAEMIA [None]
  - ASPARTATE AMINOTRANSFERASE INCREASED [None]
  - MYOCARDIAL INFARCTION [None]
  - WEIGHT INCREASED [None]
  - DIABETES MELLITUS [None]
  - VENTRICULAR FIBRILLATION [None]
  - CORONARY ARTERY DISEASE [None]
  - ALANINE AMINOTRANSFERASE INCREASED [None]
  - GAMMA-GLUTAMYLTRANSFERASE INCREASED [None]
